FAERS Safety Report 8516315-1 (Version None)
Quarter: 2012Q3

REPORT INFORMATION
  Report Type: 
  Country: None (occurrence: None)
  Receive Date: 20120717
  Receipt Date: 20120705
  Transmission Date: 20120928
  Serious: Yes (Death)
  Sender: FDA-Public Use
  Company Number: PE-BRISTOL-MYERS SQUIBB COMPANY-16741639

PATIENT
  Age: 52 Year
  Sex: Male

DRUGS (1)
  1. DASATINIB [Suspect]

REACTIONS (1)
  - DRUG INTOLERANCE [None]
